FAERS Safety Report 4861643-4 (Version None)
Quarter: 2005Q4

REPORT INFORMATION
  Report Type: 
  Country: None (occurrence: None)
  Receive Date: 20051130
  Receipt Date: 20050419
  Transmission Date: 20060501
  Serious: Yes (Hospitalization)
  Sender: FDA-Public Use
  Company Number: 200510403BWH

PATIENT
  Age: 63 Year
  Sex: Male
  Weight: 99.7913 kg

DRUGS (8)
  1. CIPRO [Suspect]
     Indication: NEPHROLITHIASIS
     Dosage: 500 MG, TOTAL DAILY : 500 MG, BID : ORAL
     Route: 048
     Dates: start: 20050125, end: 20050307
  2. CIPRO [Suspect]
     Indication: NEPHROLITHIASIS
     Dosage: 500 MG, TOTAL DAILY : 500 MG, BID : ORAL
     Route: 048
     Dates: start: 20050124
  3. EPINEPHRINE [Suspect]
     Dates: start: 20050126
  4. EPINEPHRINE [Suspect]
     Dates: start: 20050201
  5. ANVEMENT (UNCODEABLE ^UNCLASSIFIABLE^) [Suspect]
     Dates: start: 20050126
  6. ANVEMENT (UNCODEABLE ^UNCLASSIFIABLE^) [Suspect]
     Dates: start: 20050201
  7. STRESSTABS WITH ZINC [Concomitant]
  8. FLOMAX MR ^YAMANOUCHI^ [Concomitant]

REACTIONS (12)
  - AGITATION [None]
  - ANOREXIA [None]
  - CONFUSIONAL STATE [None]
  - DELIRIUM [None]
  - HALLUCINATION [None]
  - INSOMNIA [None]
  - MANIA [None]
  - NIGHTMARE [None]
  - PARANOIA [None]
  - PHOBIA [None]
  - PSYCHOTIC DISORDER [None]
  - UNEVALUABLE EVENT [None]
